FAERS Safety Report 8211019-7 (Version None)
Quarter: 2012Q1

REPORT INFORMATION
  Report Type: 
  Country: None (occurrence: None)
  Receive Date: 20120315
  Receipt Date: 20120308
  Transmission Date: 20120608
  Serious: Yes (Other)
  Sender: FDA-Public Use
  Company Number: PHHY2009CA04863

PATIENT
  Sex: Male

DRUGS (5)
  1. EXJADE [Suspect]
     Indication: THALASSAEMIA BETA
     Dosage: 1850 MG, QD
     Route: 048
     Dates: start: 20080101, end: 20081201
  2. NADOLOL [Concomitant]
     Dosage: 50 MG, QD
     Route: 048
  3. INSULIN [Concomitant]
  4. EXJADE [Suspect]
     Indication: IRON OVERLOAD
     Dosage: 1250 MG
     Route: 048
     Dates: start: 20090122, end: 20090210
  5. LASIX [Concomitant]
     Dosage: 20 MG, QD
     Route: 048

REACTIONS (4)
  - DYSPNOEA [None]
  - FLUID RETENTION [None]
  - OEDEMA [None]
  - MALAISE [None]
